FAERS Safety Report 5043211-7 (Version None)
Quarter: 2006Q3

REPORT INFORMATION
  Report Type: 
  Country: None (occurrence: None)
  Receive Date: 20060703
  Receipt Date: 20060703
  Transmission Date: 20061208
  Serious: Yes (Other)
  Sender: FDA-Public Use
  Company Number: None

PATIENT
  Sex: Female
  Weight: 90.2658 kg

DRUGS (1)
  1. LEVOFLOXACIN [Suspect]
     Indication: ACUTE SINUSITIS
     Dosage: 500MG  DAILY  PO
     Route: 048
     Dates: start: 20060515, end: 20060615

REACTIONS (4)
  - DRUG EFFECT DECREASED [None]
  - HYPOAESTHESIA [None]
  - NEUROPATHY PERIPHERAL [None]
  - PARAESTHESIA [None]
